FAERS Safety Report 13250965 (Version 1)
Quarter: 2017Q1

REPORT INFORMATION
  Report Type: Report from Study
  Country: CA (occurrence: CA)
  Receive Date: 20170220
  Receipt Date: 20170220
  Transmission Date: 20170428
  Serious: Yes (Hospitalization)
  Sender: FDA-Public Use
  Company Number: CA-BIOGEN-2017BI00358688

PATIENT
  Age: 51 Year
  Sex: Female

DRUGS (1)
  1. TECFIDERA [Suspect]
     Active Substance: DIMETHYL FUMARATE
     Indication: MULTIPLE SCLEROSIS
     Dosage: MAINTENANCE DOSE
     Route: 048
     Dates: start: 20160911

REACTIONS (5)
  - Abasia [Not Recovered/Not Resolved]
  - Flushing [Recovered/Resolved]
  - Muscular weakness [Recovered/Resolved]
  - Electric shock [Recovered/Resolved]
  - Fatigue [Not Recovered/Not Resolved]

NARRATIVE: CASE EVENT DATE: 201701
